FAERS Safety Report 12663921 (Version 2)
Quarter: 2016Q3

REPORT INFORMATION
  Report Type: Spontaneous
  Country: US (occurrence: US)
  Receive Date: 20160818
  Receipt Date: 20160831
  Transmission Date: 20161109
  Serious: No
  Sender: FDA-Public Use
  Company Number: US-BEH-2016072081

PATIENT
  Age: 23 Year
  Sex: Male
  Weight: 72.7 kg

DRUGS (1)
  1. CARIMUNE NF [Suspect]
     Active Substance: HUMAN IMMUNOGLOBULIN G
     Indication: PRODUCT USED FOR UNKNOWN INDICATION
     Dosage: UNK
     Route: 065
     Dates: start: 20160312, end: 20160314

REACTIONS (1)
  - Hepatitis B core antibody positive [Recovered/Resolved]

NARRATIVE: CASE EVENT DATE: 20160317
